FAERS Safety Report 8849027 (Version 1)
Quarter: 2012Q4

REPORT INFORMATION
  Report Type: Spontaneous
  Country: US (occurrence: None)
  Receive Date: 20121017
  Receipt Date: 20121017
  Transmission Date: 20130627
  Serious: No
  Sender: FDA-Public Use
  Company Number: None

PATIENT
  Age: 39 Year
  Sex: Female
  Weight: 91.63 kg

DRUGS (2)
  1. XOPENEX [Suspect]
     Indication: COPD
     Dates: start: 20121015
  2. XOPENEX [Suspect]
     Indication: BRONCHITIS
     Dates: start: 20121015

REACTIONS (1)
  - Feeling jittery [None]
